FAERS Safety Report 13032910 (Version 1)
Quarter: 2016Q4

REPORT INFORMATION
  Report Type: Spontaneous
  Country: US (occurrence: US)
  Receive Date: 20161215
  Receipt Date: 20161215
  Transmission Date: 20170207
  Serious: Yes (Other)
  Sender: FDA-Public Use
  Company Number: US-BION-20160684

PATIENT
  Age: 57 Year
  Sex: Female

DRUGS (1)
  1. VIRTUS (PROGESTERONE) [Suspect]
     Active Substance: PROGESTERONE

REACTIONS (1)
  - Vaginal haemorrhage [Recovered/Resolved]

NARRATIVE: CASE EVENT DATE: 20161107
